FAERS Safety Report 5235115-1 (Version None)
Quarter: 2007Q1

REPORT INFORMATION
  Report Type: 
  Country: None (occurrence: None)
  Receive Date: 20070207
  Receipt Date: 20070129
  Transmission Date: 20070707
  Serious: Yes (Other)
  Sender: FDA-Public Use
  Company Number: 15593

PATIENT
  Age: 57 Year
  Sex: Male

DRUGS (2)
  1. FLUOROURACIL [Suspect]
     Indication: METASTASES TO LUNG
     Dosage: 500 MG/M2 WEEKLY IV
     Route: 042
  2. LEUCOVORIN CALCIUM [Suspect]
     Indication: METASTASES TO LUNG
     Dosage: 20 MG/M2 WEEKLY IV
     Route: 042

REACTIONS (6)
  - AORTIC EMBOLUS [None]
  - AORTIC THROMBOSIS [None]
  - PERIPHERAL ARTERIAL OCCLUSIVE DISEASE [None]
  - PERIPHERAL ISCHAEMIA [None]
  - SOFT TISSUE NECROSIS [None]
  - TOE AMPUTATION [None]
